FAERS Safety Report 4731321-0 (Version None)
Quarter: 2005Q3

REPORT INFORMATION
  Report Type: 
  Country: None (occurrence: None)
  Receive Date: 20050802
  Receipt Date: 20050721
  Transmission Date: 20060218
  Serious: Yes (Other)
  Sender: FDA-Public Use
  Company Number: NLWYE848521JUL05

PATIENT
  Sex: Female
  Weight: 56 kg

DRUGS (8)
  1. ENBREL [Suspect]
     Indication: ANKYLOSING SPONDYLITIS
     Route: 058
     Dates: start: 20050414, end: 20050603
  2. LANOXIN [Concomitant]
     Indication: ATRIAL FIBRILLATION
     Dates: start: 20040201
  3. COVERSYL [Concomitant]
     Indication: HYPERTENSION
     Dates: start: 20050101
  4. BUMETANIDE [Concomitant]
     Indication: CARDIAC ASTHMA
     Dates: start: 20010101
  5. ACENOCOUMAROL [Concomitant]
     Indication: ANTICOAGULANT THERAPY
     Dates: start: 20040101
  6. PANTOPRAZOLE SODIUM [Concomitant]
     Indication: ANKYLOSING SPONDYLITIS
  7. MOVICOX [Concomitant]
     Indication: ANKYLOSING SPONDYLITIS
  8. ACETAMINOPHEN [Concomitant]
     Dosage: WHEN NEEDED

REACTIONS (1)
  - EJECTION FRACTION DECREASED [None]
